FAERS Safety Report 14347370 (Version 1)
Quarter: 2018Q1

REPORT INFORMATION
  Report Type: Spontaneous
  Country: US (occurrence: US)
  Receive Date: 20180103
  Receipt Date: 20180103
  Transmission Date: 20180509
  Serious: Yes (Disabling)
  Sender: FDA-Public Use
  Company Number: None

PATIENT
  Age: 31 Year
  Sex: Female
  Weight: 120.2 kg

DRUGS (3)
  1. NEXPLANON [Suspect]
     Active Substance: ETONOGESTREL
     Indication: CONTRACEPTION
     Dosage: 68 MG IMPLANT 3 YEARS IMPLANT IN LEFT ARM
     Dates: start: 20170213
  2. MELATONIN [Concomitant]
     Active Substance: MELATONIN
  3. NEXPLANON [Suspect]
     Active Substance: ETONOGESTREL
     Indication: MENSTRUATION IRREGULAR
     Dosage: 68 MG IMPLANT 3 YEARS IMPLANT IN LEFT ARM
     Dates: start: 20170213

REACTIONS (9)
  - Menorrhagia [None]
  - Breast pain [None]
  - Acne [None]
  - Nausea [None]
  - Migraine [None]
  - Fungal infection [None]
  - Headache [None]
  - Depression [None]
  - Abdominal pain [None]

NARRATIVE: CASE EVENT DATE: 20171115
